FAERS Safety Report 5623549-2 (Version None)
Quarter: 2008Q1

REPORT INFORMATION
  Report Type: 
  Country: None (occurrence: None)
  Receive Date: 20080212
  Receipt Date: 20080201
  Transmission Date: 20080703
  Serious: Yes (Other)
  Sender: FDA-Public Use
  Company Number: US-PFIZER INC-2008011290

PATIENT
  Sex: Female
  Weight: 108.9 kg

DRUGS (6)
  1. DETROL LA [Suspect]
     Indication: HYPERTONIC BLADDER
  2. PREVACID [Concomitant]
     Indication: GASTRIC DISORDER
  3. INSULIN [Concomitant]
     Indication: DIABETES MELLITUS
  4. LEVOTHROID [Concomitant]
     Indication: THYROID DISORDER
  5. ANTIHYPERTENSIVES [Concomitant]
     Indication: HYPERTENSION
  6. ZOLOFT [Concomitant]

REACTIONS (1)
  - APHONIA [None]
